FAERS Safety Report 6559150-6 (Version None)
Quarter: 2010Q1

REPORT INFORMATION
  Report Type: 
  Country: None (occurrence: None)
  Receive Date: 20100129
  Receipt Date: 20100118
  Transmission Date: 20100710
  Serious: Yes (Other)
  Sender: FDA-Public Use
  Company Number: PHEH2008US02669

PATIENT
  Sex: Male

DRUGS (15)
  1. AREDIA [Suspect]
  2. ZOMETA [Suspect]
  3. CHEMOTHERAPEUTICS NOS [Concomitant]
  4. SENNA [Concomitant]
     Dosage: 8.6 MG, BID
  5. DEXAMETHASONE [Concomitant]
     Dosage: 4 MG, UNK
  6. VELCADE [Concomitant]
  7. ACYCLOVIR [Concomitant]
     Dosage: 200 MG, Q12H
  8. CEFZIL [Concomitant]
     Dosage: 250 MG, Q12H
  9. PROSCAR [Concomitant]
     Dosage: 5 MG, DAILY
  10. UROXATRAL [Concomitant]
     Dosage: 10 MG, UNK
  11. LEVAQUIN [Concomitant]
  12. MEGACE [Concomitant]
     Dosage: 40 MG/ML BID
     Route: 048
  13. PROTONIX [Concomitant]
     Dosage: 40 MG, DAILY
     Route: 048
  14. MAGNESIUM OXIDE [Concomitant]
     Dosage: 400 MG, BID
     Route: 048
  15. DARVOCET-N 100 [Concomitant]

REACTIONS (30)
  - ANAEMIA [None]
  - ANHEDONIA [None]
  - ANXIETY [None]
  - ARTHRALGIA [None]
  - BETA GLOBULIN INCREASED [None]
  - BLOOD BILIRUBIN INCREASED [None]
  - BLOOD CALCIUM DECREASED [None]
  - BLOOD GLUCOSE INCREASED [None]
  - BLOOD IMMUNOGLOBULIN M DECREASED [None]
  - BLOOD UREA INCREASED [None]
  - BONE DISORDER [None]
  - DISABILITY [None]
  - GINGIVAL BLEEDING [None]
  - GINGIVAL SWELLING [None]
  - HAEMATOCRIT DECREASED [None]
  - HAEMOGLOBIN DECREASED [None]
  - INJURY [None]
  - INTERVERTEBRAL DISC DEGENERATION [None]
  - INTERVERTEBRAL DISC PROTRUSION [None]
  - LEUKOPENIA [None]
  - LOOSE TOOTH [None]
  - MONOCLONAL IMMUNOGLOBULIN PRESENT [None]
  - MULTIPLE MYELOMA [None]
  - OSTEOARTHRITIS [None]
  - OSTEONECROSIS [None]
  - PAIN [None]
  - RED BLOOD CELL COUNT DECREASED [None]
  - SQUAMOUS CELL CARCINOMA [None]
  - THROMBOCYTOPENIA [None]
  - TOOTH INFECTION [None]
